FAERS Safety Report 6291649-2 (Version None)
Quarter: 2009Q3

REPORT INFORMATION
  Report Type: 
  Country: None (occurrence: None)
  Receive Date: 20090730
  Receipt Date: 20090730
  Transmission Date: 20100115
  Serious: Yes (Disabling)
  Sender: FDA-Public Use
  Company Number: None

PATIENT
  Age: 34 Year
  Sex: Female
  Weight: 69.8539 kg

DRUGS (1)
  1. MIRENA [Suspect]
     Indication: CONTRACEPTION
     Dosage: 5 YEAR, INTRA-UTERINE
     Route: 015
     Dates: start: 20090118, end: 20090729

REACTIONS (19)
  - ABDOMINAL PAIN LOWER [None]
  - ACNE [None]
  - ADNEXA UTERI PAIN [None]
  - APATHY [None]
  - ASTHENIA [None]
  - BREAST PAIN [None]
  - CRYING [None]
  - CYST [None]
  - DEPRESSED MOOD [None]
  - FATIGUE [None]
  - FEELING ABNORMAL [None]
  - GALACTORRHOEA [None]
  - HEADACHE [None]
  - LOSS OF LIBIDO [None]
  - MOOD ALTERED [None]
  - PAIN IN EXTREMITY [None]
  - POLLAKIURIA [None]
  - VITAMIN D DECREASED [None]
  - VULVOVAGINAL DRYNESS [None]
